FAERS Safety Report 8928691 (Version 3)
Quarter: 2013Q2

REPORT INFORMATION
  Report Type: Spontaneous
  Country: JP (occurrence: JP)
  Receive Date: 20121128
  Receipt Date: 20130503
  Transmission Date: 20140414
  Serious: Yes (Disabling)
  Sender: FDA-Public Use
  Company Number: JP-ASTELLAS-2012US011496

PATIENT
  Age: 73 Year
  Sex: Male

DRUGS (6)
  1. TARCEVA [Suspect]
     Indication: LUNG ADENOCARCINOMA
     Dosage: 100 MG, UID/QD
     Route: 048
     Dates: start: 201007, end: 201009
  2. TARCEVA [Suspect]
     Dosage: 150 MG, UID/QD
     Route: 048
     Dates: start: 201009
  3. ATELEC [Concomitant]
     Indication: PRODUCT USED FOR UNKNOWN INDICATION
     Dosage: 10 MG, UID/QD
     Route: 048
  4. BASEN [Concomitant]
     Indication: PRODUCT USED FOR UNKNOWN INDICATION
     Dosage: 0.9 MG, UID/QD
     Route: 048
  5. MELBIN                             /00082702/ [Concomitant]
     Indication: PRODUCT USED FOR UNKNOWN INDICATION
     Dosage: 250 MG, BID
     Route: 048
  6. AMARYL [Concomitant]
     Indication: PRODUCT USED FOR UNKNOWN INDICATION
     Dosage: 3 MG, BID
     Route: 048

REACTIONS (8)
  - Incorrect dose administered [Unknown]
  - Ulcerative keratitis [Recovered/Resolved]
  - Ulcerative keratitis [Recovered/Resolved]
  - Hair disorder [Unknown]
  - Trichiasis [Unknown]
  - Ocular hyperaemia [Unknown]
  - Eye pain [Unknown]
  - Rash [Unknown]
